FAERS Safety Report 13577347 (Version 1)
Quarter: 2017Q2

REPORT INFORMATION
  Report Type: Spontaneous
  Country: CH (occurrence: CH)
  Receive Date: 20170524
  Receipt Date: 20170524
  Transmission Date: 20170830
  Serious: Yes (Hospitalization, Other)
  Sender: FDA-Public Use
  Company Number: CH-IMPAX LABORATORIES, INC-2017-IPXL-01572

PATIENT
  Age: 62 Year
  Sex: Female

DRUGS (1)
  1. ALBENZA [Suspect]
     Active Substance: ALBENDAZOLE
     Indication: HEPATIC ECHINOCOCCIASIS
     Dosage: 10 MG/KG, DAILY
     Route: 065

REACTIONS (5)
  - Neutropenia [Unknown]
  - Hepatotoxicity [Unknown]
  - Agranulocytosis [Unknown]
  - Alopecia [Unknown]
  - Candida infection [Unknown]
